FAERS Safety Report 10884667 (Version 1)
Quarter: 2015Q1

REPORT INFORMATION
  Report Type: Spontaneous
  Country: IN (occurrence: None)
  Receive Date: 20150227
  Receipt Date: 20150227
  Transmission Date: 20150721
  Serious: Yes (Other)
  Sender: FDA-Public Use
  Company Number: FK201500830

PATIENT
  Age: 71 Year
  Sex: Female

DRUGS (6)
  1. LOSARTAN [Concomitant]
     Active Substance: LOSARTAN
  2. HYDROCHLOROTHIAZIDE. [Concomitant]
     Active Substance: HYDROCHLOROTHIAZIDE
  3. ASPIRIN (ACETYLSALICYLIC ACID) [Concomitant]
     Active Substance: ASPIRIN
  4. ATORVASTATIN [Concomitant]
     Active Substance: ATORVASTATIN
  5. AMIODARONE HCL [Suspect]
     Active Substance: AMIODARONE HYDROCHLORIDE
     Indication: ATRIAL FIBRILLATION
  6. METOPROLOL [Concomitant]
     Active Substance: METOPROLOL

REACTIONS (8)
  - Decreased appetite [None]
  - Fatigue [None]
  - Staring [None]
  - Mental impairment [None]
  - Depression [None]
  - Catatonia [None]
  - Nausea [None]
  - Activities of daily living impaired [None]
